FAERS Safety Report 9889834 (Version 2)
Quarter: 2014Q1

REPORT INFORMATION
  Report Type: Spontaneous
  Country: US (occurrence: US)
  Receive Date: 20140212
  Receipt Date: 20140214
  Transmission Date: 20141002
  Serious: No
  Sender: FDA-Public Use
  Company Number: US-009507513-1402USA002925

PATIENT
  Sex: Male

DRUGS (2)
  1. COSOPT [Suspect]
     Dosage: 3 TIMES
     Route: 047
  2. COSOPT [Suspect]
     Dosage: ANOTHER BOTTLE
     Route: 047

REACTIONS (3)
  - Ocular hyperaemia [Unknown]
  - Eye irritation [Recovered/Resolved]
  - Drug dose omission [Unknown]
